FAERS Safety Report 4993562-7 (Version None)
Quarter: 2006Q2

REPORT INFORMATION
  Report Type: 
  Country: None (occurrence: None)
  Receive Date: 20060505
  Receipt Date: 20060428
  Transmission Date: 20061013
  Serious: Yes (Hospitalization)
  Sender: FDA-Public Use
  Company Number: PHBS2006BR06388

PATIENT
  Age: 63 Year
  Sex: Male

DRUGS (8)
  1. ACETAMINOPHEN [Concomitant]
  2. MORPHINE [Concomitant]
  3. ALLOPURINOL [Concomitant]
  4. VOLTAREN [Suspect]
     Indication: ARTHRALGIA
     Dosage: 225 MG/DAY
     Route: 030
     Dates: start: 20040924, end: 20060110
  5. HEPARIN [Concomitant]
  6. DIAZEPAM [Concomitant]
  7. METOCLOPRAMIDE HYDROCHLORIDE [Concomitant]
  8. PHENOXYMETHYLPENICILLIN [Concomitant]

REACTIONS (7)
  - ARTHRALGIA [None]
  - ARTHRITIS BACTERIAL [None]
  - BLOOD CREATININE INCREASED [None]
  - DEHYDRATION [None]
  - NEPHROLITHIASIS [None]
  - OEDEMA PERIPHERAL [None]
  - RENAL FAILURE [None]
